FAERS Safety Report 7395862-2 (Version None)
Quarter: 2011Q2

REPORT INFORMATION
  Report Type: 
  Country: None (occurrence: None)
  Receive Date: 20110405
  Receipt Date: 20110328
  Transmission Date: 20111010
  Serious: Yes (Other)
  Sender: FDA-Public Use
  Company Number: US-AMGEN-USASP2011010236

PATIENT
  Age: 70 Year
  Sex: Female
  Weight: 95.238 kg

DRUGS (3)
  1. ALLOPURINOL [Concomitant]
     Dosage: 300 MG, UNK
  2. WHOLE BLOOD [Concomitant]
  3. EPOGEN [Suspect]
     Indication: ANAEMIA
     Dosage: UNK UNK, 2 TIMES/WK
     Route: 058
     Dates: start: 20090601

REACTIONS (5)
  - NON-NEUTRALISING ANTIBODIES POSITIVE [None]
  - MICROCYTIC ANAEMIA [None]
  - THROMBOCYTOPENIA [None]
  - TRANSFUSION [None]
  - DRUG INEFFECTIVE [None]
